FAERS Safety Report 16281008 (Version 1)
Quarter: 2019Q2

REPORT INFORMATION
  Report Type: Spontaneous
  Country: US (occurrence: US)
  Receive Date: 20190507
  Receipt Date: 20190507
  Transmission Date: 20190711
  Serious: No
  Sender: FDA-Public Use
  Company Number: US-VERTEX PHARMACEUTICALS-2019-004095

PATIENT
  Sex: Male

DRUGS (18)
  1. VITAMIN D2 [Concomitant]
     Active Substance: ERGOCALCIFEROL
  2. FISH OIL [Concomitant]
     Active Substance: FISH OIL
  3. ARGININE [Concomitant]
     Active Substance: ARGININE
  4. CLARITIN [Concomitant]
     Active Substance: LORATADINE
  5. SELENIUM [Concomitant]
     Active Substance: SELENIUM
  6. CARNITINE [Concomitant]
     Active Substance: CARNITINE
  7. MONO VITAMINE B12 [Concomitant]
  8. FLONASE                            /00908302/ [Concomitant]
     Active Substance: MOMETASONE FUROATE
  9. DULERA [Concomitant]
     Active Substance: FORMOTEROL FUMARATE DIHYDRATE\MOMETASONE FUROATE
  10. ZINC. [Concomitant]
     Active Substance: ZINC
  11. CALCIUM [Concomitant]
     Active Substance: CALCIUM
  12. TOBI [Concomitant]
     Active Substance: TOBRAMYCIN
  13. SYMDEKO [Suspect]
     Active Substance: IVACAFTOR\TEZACAFTOR
     Indication: CYSTIC FIBROSIS
     Dosage: 1 DOSAGE FORM, BID
     Route: 048
     Dates: start: 201812
  14. GLUTAMINE [Concomitant]
     Active Substance: GLUTAMINE
  15. MAGNESIUM [Concomitant]
     Active Substance: MAGNESIUM
  16. CAYSTON [Concomitant]
     Active Substance: AZTREONAM
  17. AZELASTINE HCL [Concomitant]
     Active Substance: AZELASTINE HYDROCHLORIDE
  18. BOOST [Concomitant]
     Active Substance: DIETARY SUPPLEMENT

REACTIONS (1)
  - Infective pulmonary exacerbation of cystic fibrosis [Not Recovered/Not Resolved]
